FAERS Safety Report 14092249 (Version 3)
Quarter: 2018Q1

REPORT INFORMATION
  Report Type: Spontaneous
  Country: IT (occurrence: IT)
  Receive Date: 20171016
  Receipt Date: 20180212
  Transmission Date: 20180508
  Serious: Yes (Life-Threatening, Hospitalization, Other)
  Sender: FDA-Public Use
  Company Number: IT-MYLANLABS-2017M1064535

PATIENT
  Age: 57 Year
  Sex: Female

DRUGS (5)
  1. RIVOTRIL [Suspect]
     Active Substance: CLONAZEPAM
     Indication: INTENTIONAL SELF-INJURY
     Dosage: 60 MG, TOTAL
     Route: 048
     Dates: start: 20170911, end: 20170911
  2. QUETIAPINE. [Suspect]
     Active Substance: QUETIAPINE
     Indication: INTENTIONAL SELF-INJURY
     Dosage: 6000 MG, TOTAL
     Route: 048
     Dates: start: 20170911, end: 20170911
  3. DALMADORM 30 MG CAPSULE RIGIDE [Suspect]
     Active Substance: FLURAZEPAM\FLURAZEPAM HYDROCHLORIDE
     Indication: INTENTIONAL SELF-INJURY
     Dosage: 900 MG, TOTAL
     Route: 048
     Dates: start: 20170911, end: 20170911
  4. NOZINAN [Suspect]
     Active Substance: LEVOMEPROMAZINE
     Indication: INTENTIONAL SELF-INJURY
     Dosage: 500 MG, TOTAL
     Route: 048
     Dates: start: 20170911, end: 20170911
  5. ORAMORPH [Suspect]
     Active Substance: MORPHINE SULFATE
     Indication: INTENTIONAL SELF-INJURY
     Dosage: 20 MG, TOTAL
     Route: 048
     Dates: start: 20170911, end: 20170911

REACTIONS (8)
  - Hypoxia [Unknown]
  - Overdose [Unknown]
  - Intentional self-injury [Unknown]
  - Drug abuse [Unknown]
  - Hypotension [Unknown]
  - Loss of consciousness [Unknown]
  - Hypokalaemia [Unknown]
  - Electrocardiogram QT prolonged [Unknown]

NARRATIVE: CASE EVENT DATE: 20170911
